FAERS Safety Report 8776476 (Version 2)
Quarter: 2012Q4

REPORT INFORMATION
  Report Type: 
  Country: DE (occurrence: DE)
  Receive Date: 20120910
  Receipt Date: 20121119
  Transmission Date: 20130627
  Serious: Yes (Other)
  Sender: FDA-Public Use
  Company Number: PHHY2012DE077382

PATIENT
  Age: 44 Year
  Sex: Male

DRUGS (6)
  1. VANCOMYCIN [Suspect]
     Indication: PNEUMONITIS
  2. VANCOMYCIN [Suspect]
     Indication: ENDOCARDITIS
  3. MEROPENEM [Suspect]
     Indication: ENDOCARDITIS
  4. MEROPENEM [Suspect]
     Indication: PNEUMONITIS
  5. MOXIFLOXACIN [Suspect]
     Indication: PNEUMONITIS
  6. MOXIFLOXACIN [Suspect]
     Indication: ENDOCARDITIS

REACTIONS (12)
  - Drug reaction with eosinophilia and systemic symptoms [Recovered/Resolved]
  - Renal failure acute [Recovered/Resolved]
  - Tubulointerstitial nephritis [Recovered/Resolved]
  - Rash maculo-papular [Recovered/Resolved]
  - Pruritus [Recovered/Resolved]
  - Fatigue [Recovered/Resolved]
  - Arthralgia [Recovered/Resolved]
  - Feeling hot [Recovered/Resolved]
  - Skin oedema [Recovered/Resolved]
  - Eosinophilia [Recovered/Resolved]
  - Oedema peripheral [Recovered/Resolved]
  - Papule [Recovered/Resolved]
